FAERS Safety Report 9026964 (Version 3)
Quarter: 2013Q1

REPORT INFORMATION
  Report Type: Spontaneous
  Country: US (occurrence: US)
  Receive Date: 20130123
  Receipt Date: 20130311
  Transmission Date: 20140127
  Serious: Yes (Death)
  Sender: FDA-Public Use
  Company Number: US-PFIZER INC-2013026586

PATIENT
  Age: 77 Year
  Sex: Male

DRUGS (1)
  1. INLYTA [Suspect]
     Indication: RENAL CANCER
     Dosage: UNK
     Route: 048

REACTIONS (2)
  - Disease progression [Fatal]
  - Renal cancer [Fatal]
